FAERS Safety Report 20474763 (Version 1)
Quarter: 2022Q1

REPORT INFORMATION
  Report Type: Report from Study
  Country: US (occurrence: US)
  Receive Date: 20220215
  Receipt Date: 20220215
  Transmission Date: 20220423
  Serious: Yes (Hospitalization)
  Sender: FDA-Public Use
  Company Number: US-GLAXOSMITHKLINE-US2022GSK025059

PATIENT
  Age: 71 Year
  Sex: Female
  Weight: 68.027 kg

DRUGS (7)
  1. SOTROVIMAB [Suspect]
     Active Substance: SOTROVIMAB
     Indication: COVID-19
     Dosage: 2 ML, DOSE ONE- RIGHT DELTOID
     Route: 030
     Dates: start: 20210721
  2. SOTROVIMAB [Suspect]
     Active Substance: SOTROVIMAB
     Dosage: 2 ML, DOSE TWO- LEFT DELTOID
     Route: 030
     Dates: start: 20210721
  3. LISINOPRIL [Concomitant]
     Active Substance: LISINOPRIL
     Indication: Hypertension
     Dosage: 10 MG, QD
     Route: 048
     Dates: start: 2018
  4. BISOPROLOL FUMARATE\HYDROCHLOROTHIAZIDE [Concomitant]
     Active Substance: BISOPROLOL FUMARATE\HYDROCHLOROTHIAZIDE
     Indication: Hypertension
     Dosage: 1 DF, QD
     Route: 048
     Dates: start: 2018, end: 20211207
  5. SIMVASTATIN [Concomitant]
     Active Substance: SIMVASTATIN
     Indication: Blood cholesterol increased
     Dosage: 20 MG, QD
     Route: 048
     Dates: start: 2018
  6. TYLENOL [Concomitant]
     Active Substance: ACETAMINOPHEN
     Indication: COVID-19 prophylaxis
     Dosage: 650 MG, PRN
     Route: 048
     Dates: start: 20210719
  7. BISOPROLOL [Concomitant]
     Active Substance: BISOPROLOL
     Indication: Hypertension
     Dosage: 5 MG, QD
     Route: 048
     Dates: start: 20211208

REACTIONS (1)
  - Hypertension [Recovered/Resolved]

NARRATIVE: CASE EVENT DATE: 20220101
